FAERS Safety Report 6546702-2 (Version None)
Quarter: 2010Q1

REPORT INFORMATION
  Report Type: 
  Country: None (occurrence: None)
  Receive Date: 20100122
  Receipt Date: 20100112
  Transmission Date: 20100710
  Serious: Yes (Other)
  Sender: FDA-Public Use
  Company Number: JP-PFIZER INC-2009232478

PATIENT
  Age: 46 Year
  Sex: Male
  Weight: 64.7 kg

DRUGS (3)
  1. SUNITINIB MALATE [Suspect]
     Indication: RENAL CELL CARCINOMA
     Dosage: 25 MG, 1X/DAY
     Route: 048
     Dates: start: 20090114
  2. ALLEGRA [Concomitant]
     Dosage: UNK
     Route: 048
     Dates: start: 20090114
  3. UREPEARL [Concomitant]
     Dosage: UNK
     Dates: start: 20090108

REACTIONS (5)
  - HAEMORRHAGE [None]
  - HYPOTHYROIDISM [None]
  - LOSS OF CONSCIOUSNESS [None]
  - PALMAR-PLANTAR ERYTHRODYSAESTHESIA SYNDROME [None]
  - PLATELET COUNT DECREASED [None]
